FAERS Safety Report 10446914 (Version 1)
Quarter: 2014Q3

REPORT INFORMATION
  Report Type: Spontaneous
  Country: IN (occurrence: IN)
  Receive Date: 20140911
  Receipt Date: 20140911
  Transmission Date: 20150326
  Serious: Yes (Hospitalization)
  Sender: FDA-Public Use
  Company Number: IN-SUN PHARMACEUTICAL INDUSTRIES LTD-2014SUN02004

PATIENT
  Age: 63 Year
  Sex: Male

DRUGS (3)
  1. ESCITALOPRAM [Concomitant]
     Active Substance: ESCITALOPRAM OXALATE
     Dosage: 10 MG, OD
     Route: 065
  2. OLANZAPINE 5 MG TABLETS [Suspect]
     Active Substance: OLANZAPINE
     Indication: DEPRESSION
     Dosage: 5 MG, OD
     Route: 065
  3. ESCITALOPRAM [Concomitant]
     Active Substance: ESCITALOPRAM OXALATE
     Indication: DEPRESSION
     Dosage: 5 MG, OD FOR LAST 2 YEARS
     Route: 065

REACTIONS (4)
  - Gait disturbance [Recovered/Resolved]
  - Hyponatraemia [Recovered/Resolved]
  - Urinary retention [Recovered/Resolved]
  - Tachycardia [Recovered/Resolved]
